FAERS Safety Report 19634500 (Version 1)
Quarter: 2021Q3

REPORT INFORMATION
  Report Type: Spontaneous
  Country: US (occurrence: US)
  Receive Date: 20210729
  Receipt Date: 20210729
  Transmission Date: 20211014
  Serious: No
  Sender: FDA-Public Use
  Company Number: US-PARATEK PHARMACEUTICALS, INC.-2021PTK00081

PATIENT
  Age: 85 Year
  Sex: Male
  Weight: 52.61 kg

DRUGS (9)
  1. CARDURA [Concomitant]
     Active Substance: DOXAZOSIN MESYLATE
  2. NUZYRA [Suspect]
     Active Substance: OMADACYCLINE
     Indication: MYCOBACTERIAL INFECTION
     Dosage: UNK LOADING DOSE
     Route: 048
     Dates: start: 20210520, end: 2021
  3. LATANOPROST. [Concomitant]
     Active Substance: LATANOPROST
  4. NUZYRA [Suspect]
     Active Substance: OMADACYCLINE
     Indication: OSTEOMYELITIS
     Dosage: 300 MG, 1X/DAY
     Route: 048
     Dates: start: 2021, end: 2021
  5. NUZYRA [Suspect]
     Active Substance: OMADACYCLINE
     Indication: RESPIRATORY DISORDER
  6. AMLODIPINE [Concomitant]
     Active Substance: AMLODIPINE BESYLATE
  7. LAMOTRIGINE. [Concomitant]
     Active Substance: LAMOTRIGINE
  8. LOSARTAN. [Concomitant]
     Active Substance: LOSARTAN
  9. TIMOLOL. [Concomitant]
     Active Substance: TIMOLOL

REACTIONS (3)
  - Off label use [Not Recovered/Not Resolved]
  - Nausea [Not Recovered/Not Resolved]
  - Vomiting [Recovered/Resolved]

NARRATIVE: CASE EVENT DATE: 2021
